FAERS Safety Report 8719810 (Version 7)
Quarter: 2013Q2

REPORT INFORMATION
  Report Type: Spontaneous
  Country: IE (occurrence: IE)
  Receive Date: 20120813
  Receipt Date: 20130611
  Transmission Date: 20140414
  Serious: Yes (Death, Hospitalization, Other)
  Sender: FDA-Public Use
  Company Number: PHFR2012IE004432

PATIENT
  Age: 62 Year
  Sex: Male

DRUGS (8)
  1. CLOZARIL [Suspect]
     Indication: SCHIZOPHRENIA
     Dosage: 325 MG, DAILY (125 MG MANE AND 200 MG NOCTE)
     Route: 048
     Dates: start: 20050117
  2. ASPIRIN [Concomitant]
     Dosage: 75 MG, MANE
     Route: 048
  3. EPILIM CHRONO [Concomitant]
     Dosage: 200MG AT MORNING AND 500MG AT NIGHT
     Route: 048
  4. METOPROLOL [Concomitant]
     Dosage: 50 MG, BID
     Route: 048
  5. KWELLS [Concomitant]
     Indication: SALIVARY HYPERSECRETION
     Route: 048
  6. CRESTOR [Concomitant]
     Dosage: 5 MG, AT NIGHT
     Route: 048
  7. MOVICOL [Concomitant]
     Dosage: 1 DF, UNK
  8. PLAVIX [Concomitant]
     Dosage: 75 MG MANE

REACTIONS (7)
  - Cerebral haemorrhage [Fatal]
  - Fall [Recovered/Resolved]
  - Myocardial ischaemia [Not Recovered/Not Resolved]
  - Psychotic disorder [Not Recovered/Not Resolved]
  - Mental disorder [Not Recovered/Not Resolved]
  - Convulsion [Recovering/Resolving]
  - Cerebrovascular accident [Unknown]
